FAERS Safety Report 7519742-4 (Version None)
Quarter: 2011Q2

REPORT INFORMATION
  Report Type: 
  Country: None (occurrence: None)
  Receive Date: 20110602
  Receipt Date: 20110531
  Transmission Date: 20111010
  Serious: No
  Sender: FDA-Public Use
  Company Number: US-TEVA-280199USA

PATIENT
  Age: 31 Year
  Sex: Female

DRUGS (3)
  1. M.V.I. [Concomitant]
     Indication: ROUTINE HEALTH MAINTENANCE
  2. PLAN B ONE-STEP [Suspect]
     Indication: POST COITAL CONTRACEPTION
     Dosage: 1.5 MILLIGRAM;
     Route: 048
     Dates: start: 20110411, end: 20110411
  3. RAPAFLO [Concomitant]
     Indication: BLADDER DISORDER
     Dosage: 8 MILLIGRAM;

REACTIONS (6)
  - NAUSEA [None]
  - MENORRHAGIA [None]
  - BREAST TENDERNESS [None]
  - MENSTRUATION DELAYED [None]
  - BACK PAIN [None]
  - PELVIC PAIN [None]
